FAERS Safety Report 5492738-2 (Version None)
Quarter: 2007Q4

REPORT INFORMATION
  Report Type: 
  Country: None (occurrence: None)
  Receive Date: 20071023
  Receipt Date: 20071015
  Transmission Date: 20080405
  Serious: Yes (Hospitalization, Other)
  Sender: FDA-Public Use
  Company Number: PHEH2007US11254

PATIENT
  Age: 76 Year
  Sex: Female

DRUGS (10)
  1. ZOMETA [Suspect]
     Dosage: EVERY 6 WEEKS
     Dates: start: 20030321
  2. ACETAMINOPHEN W/ CODEINE [Concomitant]
  3. GENTAMICIN [Concomitant]
  4. PROCHLORPERAZINE [Concomitant]
     Dosage: 10 MG, UNK
  5. PREDNISOLONE [Concomitant]
  6. XALATAN [Concomitant]
     Dosage: 0.005 %, UNK
  7. FEMARA [Suspect]
     Indication: BREAST CANCER
     Dosage: 2.5 MG, QD
     Dates: start: 20030321, end: 20060531
  8. PRED FORTE [Concomitant]
     Dosage: UNK, BID RIGHT EYE
     Route: 047
     Dates: start: 20070405
  9. ATROPINE [Concomitant]
     Dosage: 1%, BID RIGHT EYE
     Dates: start: 20070405
  10. PAXIL [Concomitant]
     Indication: DEPRESSION

REACTIONS (13)
  - BLINDNESS [None]
  - BLINDNESS UNILATERAL [None]
  - EYE OPERATION [None]
  - GENERAL PHYSICAL HEALTH DETERIORATION [None]
  - LUNG NEOPLASM MALIGNANT [None]
  - LUNG OPERATION [None]
  - PHOTOCOAGULATION [None]
  - RETINAL ARTERY OCCLUSION [None]
  - RETINAL DETACHMENT [None]
  - SCLERAL BUCKLING SURGERY [None]
  - VISION BLURRED [None]
  - VISUAL ACUITY REDUCED [None]
  - VITRECTOMY [None]
